FAERS Safety Report 6107996-0 (Version None)
Quarter: 2009Q1

REPORT INFORMATION
  Report Type: 
  Country: None (occurrence: None)
  Receive Date: 20090309
  Receipt Date: 20090204
  Transmission Date: 20090719
  Serious: No
  Sender: FDA-Public Use
  Company Number: US-BAYER-200910456BCC

PATIENT
  Sex: Female
  Weight: 63 kg

DRUGS (9)
  1. ALEVE [Suspect]
     Indication: ARTHRITIS
  2. ALEVE [Suspect]
  3. ALEVE [Suspect]
     Dosage: UNIT DOSE: 220 MG
  4. ALEVE [Suspect]
     Dosage: UNIT DOSE: 220 MG
  5. GLUCOPHAGE [Concomitant]
  6. ACTOS [Concomitant]
  7. PLENDIL [Concomitant]
  8. AVAPRO [Concomitant]
  9. VITAMINS [Concomitant]

REACTIONS (2)
  - ARTHRALGIA [None]
  - BLOOD PRESSURE SYSTOLIC INCREASED [None]
